FAERS Safety Report 23940002 (Version 1)
Quarter: 2024Q2

REPORT INFORMATION
  Report Type: Report from Study
  Country: TN (occurrence: TN)
  Receive Date: 20240605
  Receipt Date: 20240605
  Transmission Date: 20240716
  Serious: Yes (Hospitalization, Other)
  Sender: FDA-Public Use
  Company Number: TN-ABBVIE-5786523

PATIENT
  Age: 37 Year
  Sex: Male

DRUGS (2)
  1. HUMIRA [Suspect]
     Active Substance: ADALIMUMAB
     Indication: Crohn^s disease
     Dosage: FORM STRENGTH-40 MG?STOP DATE TEXT: APPROXIMATELY 2 MONTHS AGO
     Route: 058
     Dates: start: 20230501
  2. HUMIRA [Suspect]
     Active Substance: ADALIMUMAB
     Dosage: FORM STRENGTH-40 MG
     Route: 058
     Dates: start: 20070101, end: 20230222

REACTIONS (3)
  - Abdominal hernia obstructive [Recovering/Resolving]
  - Crohn^s disease [Unknown]
  - Hospitalisation [Recovering/Resolving]

NARRATIVE: CASE EVENT DATE: 20240313
